FAERS Safety Report 9450166 (Version 1)
Quarter: 2013Q3

REPORT INFORMATION
  Report Type: Spontaneous
  Country: US (occurrence: US)
  Receive Date: 20130809
  Receipt Date: 20130809
  Transmission Date: 20140515
  Serious: No
  Sender: FDA-Public Use
  Company Number: US-GLAXOSMITHKLINE-A1021750A

PATIENT
  Sex: Female

DRUGS (1)
  1. REQUIP XL [Suspect]
     Indication: RESTLESS LEGS SYNDROME

REACTIONS (4)
  - Pain [Unknown]
  - Drug ineffective for unapproved indication [Unknown]
  - Wrong technique in drug usage process [Unknown]
  - Off label use [Unknown]
